FAERS Safety Report 9395035 (Version 1)
Quarter: 2013Q3

REPORT INFORMATION
  Report Type: Spontaneous
  Country: US (occurrence: US)
  Receive Date: 20130711
  Receipt Date: 20130711
  Transmission Date: 20140515
  Serious: No
  Sender: FDA-Public Use
  Company Number: US-BAYER-2013-084571

PATIENT
  Sex: 0

DRUGS (7)
  1. ALEVE CAPLET [Suspect]
     Indication: MIGRAINE
     Dosage: UNK
  2. ALEVE CAPLET [Suspect]
     Indication: VOMITING
  3. ALEVE CAPLET [Suspect]
     Indication: PYREXIA
  4. ALEVE CAPLET [Suspect]
     Indication: CHILLS
  5. ALEVE CAPLET [Suspect]
     Indication: PAIN
  6. ALEVE CAPLET [Suspect]
     Indication: EAR PAIN
  7. TYLENOL [PARACETAMOL] [Concomitant]

REACTIONS (1)
  - Drug ineffective [None]
